FAERS Safety Report 11092567 (Version 3)
Quarter: 2015Q2

REPORT INFORMATION
  Report Type: Report from Study
  Country: GB (occurrence: None)
  Receive Date: 20150504
  Receipt Date: 20150518
  Transmission Date: 20150821
  Serious: No
  Sender: FDA-Public Use
  Company Number: GB2015GSK057798

PATIENT
  Age: 51 Year
  Sex: Male
  Weight: 74.4 kg

DRUGS (4)
  1. ABACAVIR [Concomitant]
     Active Substance: ABACAVIR
  2. ECHINACEA [Concomitant]
     Active Substance: ECHINACEA, UNSPECIFIED
  3. DOLUTEGRAVIR (DOLUTEGRAVIR) UNKNOWN [Suspect]
     Active Substance: DOLUTEGRAVIR
     Dates: start: 20150202, end: 20150427
  4. LAMIVUDINE. [Concomitant]
     Active Substance: LAMIVUDINE

REACTIONS (10)
  - Epistaxis [None]
  - Toxicity to various agents [None]
  - Alanine aminotransferase increased [None]
  - Nausea [None]
  - Influenza like illness [None]
  - Dehydration [None]
  - Diarrhoea [None]
  - Abdominal pain upper [None]
  - Vomiting [None]
  - Headache [None]

NARRATIVE: CASE EVENT DATE: 20150421
